FAERS Safety Report 18690374 (Version 2)
Quarter: 2021Q1

REPORT INFORMATION
  Report Type: Report from Study
  Country: US (occurrence: US)
  Receive Date: 20210101
  Receipt Date: 20210216
  Transmission Date: 20210419
  Serious: Yes (Hospitalization)
  Sender: FDA-Public Use
  Company Number: US-ROCHE-2742037

PATIENT
  Age: 67 Year
  Sex: Male
  Weight: 85.6 kg

DRUGS (4)
  1. CISPLATIN. [Suspect]
     Active Substance: CISPLATIN
     Indication: BLADDER TRANSITIONAL CELL CARCINOMA
     Dosage: MOST RECENT DOSE RECEIVED ON 19/JUN/2020
     Route: 042
     Dates: start: 20200529
  2. ATEZOLIZUMAB. [Suspect]
     Active Substance: ATEZOLIZUMAB
     Indication: BLADDER TRANSITIONAL CELL CARCINOMA
     Dosage: MOST RECENT DOSE RECEIVED ON 19/JUN/2020
     Route: 042
     Dates: start: 20200529
  3. MITOMYCIN C [Suspect]
     Active Substance: MITOMYCIN
     Indication: BLADDER TRANSITIONAL CELL CARCINOMA
     Dosage: 12 MG/M2 IV GIVEN ON SAME DAY AS DOSE 1 OF RT
     Route: 042
  4. 5?FLUOROURACIL [Suspect]
     Active Substance: FLUOROURACIL
     Indication: BLADDER TRANSITIONAL CELL CARCINOMA
     Dosage: 5?FLUOROURACIL (5?FU): 500 MG/M2 IV GIVEN ON SAME DAYS AS DOSES 1 TO 5
     Route: 042

REACTIONS (1)
  - Pulmonary embolism [Recovered/Resolved]

NARRATIVE: CASE EVENT DATE: 20200622
